FAERS Safety Report 21994975 (Version 2)
Quarter: 2023Q1

REPORT INFORMATION
  Report Type: Spontaneous
  Country: JP (occurrence: JP)
  Receive Date: 20230215
  Receipt Date: 20230302
  Transmission Date: 20230417
  Serious: Yes (Death)
  Sender: FDA-Public Use
  Company Number: A202300088-001

PATIENT
  Age: 68 Year
  Sex: Female

DRUGS (12)
  1. BENDAMUSTINE HYDROCHLORIDE [Suspect]
     Active Substance: BENDAMUSTINE HYDROCHLORIDE
     Indication: Follicular lymphoma
     Dosage: 90 MG/M2, CYCLE 1 GB THERAPY
     Route: 042
     Dates: start: 20211005
  2. BENDAMUSTINE HYDROCHLORIDE [Suspect]
     Active Substance: BENDAMUSTINE HYDROCHLORIDE
     Dosage: 90 MG/M2, CYCLE 2 GB THERAPY
     Route: 042
     Dates: start: 20211103
  3. BENDAMUSTINE HYDROCHLORIDE [Suspect]
     Active Substance: BENDAMUSTINE HYDROCHLORIDE
     Dosage: 90 MG/M2, CYCLE 3 GB THERAPY
     Route: 042
     Dates: start: 20211201
  4. BENDAMUSTINE HYDROCHLORIDE [Suspect]
     Active Substance: BENDAMUSTINE HYDROCHLORIDE
     Dosage: 90 MG/M2, CYCLE 4 GB THERAPY
     Route: 042
     Dates: start: 20220105
  5. BENDAMUSTINE HYDROCHLORIDE [Suspect]
     Active Substance: BENDAMUSTINE HYDROCHLORIDE
     Dosage: 90 MG/M2, CYCLE 5 GB THERAPY
     Route: 042
     Dates: start: 20220202
  6. BENDAMUSTINE HYDROCHLORIDE [Suspect]
     Active Substance: BENDAMUSTINE HYDROCHLORIDE
     Dosage: 90 MG/M2, CYCLE 6 GB THERAPY
     Route: 042
     Dates: start: 20220302
  7. GAZYVA [Concomitant]
     Active Substance: OBINUTUZUMAB
     Indication: Follicular lymphoma
     Dosage: 1000 MG, CYCLE 1 GB THERAPY
     Route: 042
     Dates: start: 20211012
  8. GAZYVA [Concomitant]
     Active Substance: OBINUTUZUMAB
     Dosage: 1000 MG, CYCLE 2 GB THERAPY
     Route: 042
     Dates: start: 20211102
  9. GAZYVA [Concomitant]
     Active Substance: OBINUTUZUMAB
     Dosage: 1000 MG, CYCLE 3 GB THERAPY
     Route: 042
     Dates: start: 20211130
  10. GAZYVA [Concomitant]
     Active Substance: OBINUTUZUMAB
     Dosage: 1000 MG, CYCLE 4 GB THERAPY
     Route: 042
     Dates: start: 20220104
  11. GAZYVA [Concomitant]
     Active Substance: OBINUTUZUMAB
     Dosage: 1000 MG, CYCLE 5 GB THERAPY
     Route: 042
     Dates: start: 20220201
  12. GAZYVA [Concomitant]
     Active Substance: OBINUTUZUMAB
     Dosage: 1000 MG, CYCLE 6 GB THERAPY
     Route: 042
     Dates: start: 20220301

REACTIONS (1)
  - COVID-19 [Fatal]

NARRATIVE: CASE EVENT DATE: 20221124
